FAERS Safety Report 20217664 (Version 1)
Quarter: 2021Q4

REPORT INFORMATION
  Report Type: Spontaneous
  Country: SE (occurrence: SE)
  Receive Date: 20211222
  Receipt Date: 20211222
  Transmission Date: 20220303
  Serious: Yes (Other)
  Sender: FDA-Public Use
  Company Number: SE-MPA-1614684958318

PATIENT
  Age: 63 Year
  Sex: Male

DRUGS (3)
  1. ZYPADHERA [Suspect]
     Active Substance: OLANZAPINE PAMOATE
     Indication: Bipolar I disorder
     Dosage: 300 MG, MONTHLY (1/M)
     Route: 030
     Dates: start: 2019, end: 20210209
  2. ZYPADHERA [Suspect]
     Active Substance: OLANZAPINE PAMOATE
     Indication: Bipolar I disorder
     Dosage: 300 MG, MONTHLY (1/M)
     Route: 030
     Dates: start: 2019, end: 20210209
  3. ZYPADHERA [Suspect]
     Active Substance: OLANZAPINE PAMOATE
     Indication: Bipolar I disorder
     Dosage: 300 MG, MONTHLY (1/M)
     Route: 030
     Dates: start: 2019, end: 20210209

REACTIONS (3)
  - Confusional state [Recovered/Resolved]
  - Post-injection delirium sedation syndrome [Recovered/Resolved]
  - Fatigue [Recovered/Resolved]

NARRATIVE: CASE EVENT DATE: 20210209
